FAERS Safety Report 23424558 (Version 1)
Quarter: 2024Q1

REPORT INFORMATION
  Report Type: Spontaneous
  Country: EG (occurrence: EG)
  Receive Date: 20240120
  Receipt Date: 20240120
  Transmission Date: 20240410
  Serious: Yes (Hospitalization, Other)
  Sender: FDA-Public Use
  Company Number: EG-EPICPHARMA-EG-2024EPCLIT00091

PATIENT
  Age: 31 Year
  Sex: Male

DRUGS (2)
  1. TRANEXAMIC ACID [Suspect]
     Active Substance: TRANEXAMIC ACID
     Indication: Product used for unknown indication
     Dosage: 500 MG/5 ML AMPOULE
     Route: 037
  2. MANNITOL [Suspect]
     Active Substance: MANNITOL
     Indication: Supportive care
     Dosage: 20% 150 ML EVERY 8 HOURS FOR 2 DAYS.
     Route: 065

REACTIONS (3)
  - Myoclonic epilepsy [Recovered/Resolved]
  - Sinus tachycardia [Recovered/Resolved]
  - Accidental exposure to product [Unknown]
